FAERS Safety Report 13316317 (Version 1)
Quarter: 2017Q1

REPORT INFORMATION
  Report Type: Spontaneous
  Country: FR (occurrence: FR)
  Receive Date: 20170310
  Receipt Date: 20170310
  Transmission Date: 20170428
  Serious: Yes (Hospitalization)
  Sender: FDA-Public Use
  Company Number: FR-ROCHE-1902901

PATIENT
  Age: 66 Year
  Sex: Female

DRUGS (3)
  1. TAXOL [Concomitant]
     Active Substance: PACLITAXEL
     Dosage: 4 CYCLES?LAST CYCLE IN AUG-2015
     Route: 065
     Dates: start: 201502
  2. AVASTIN [Suspect]
     Active Substance: BEVACIZUMAB
     Indication: OVARIAN CANCER
     Route: 042
  3. CARBOPLATINE [Concomitant]
     Active Substance: CARBOPLATIN
     Dosage: 4 CYCLES?LAST CYCLE IN AUG-2015
     Route: 065
     Dates: start: 201502

REACTIONS (2)
  - Coronary artery stenosis [Recovered/Resolved]
  - Acute coronary syndrome [Recovered/Resolved]

NARRATIVE: CASE EVENT DATE: 20160912
